FAERS Safety Report 7491317-5 (Version None)
Quarter: 2011Q2

REPORT INFORMATION
  Report Type: 
  Country: None (occurrence: None)
  Receive Date: 20110519
  Receipt Date: 20110516
  Transmission Date: 20111010
  Serious: Yes (Hospitalization)
  Sender: FDA-Public Use
  Company Number: B0719988A

PATIENT
  Sex: Female

DRUGS (2)
  1. MONTELUKAST SODIUM [Suspect]
     Dosage: 5MG PER DAY
     Dates: start: 20110101, end: 20110308
  2. FLIXOTIDE [Suspect]
     Indication: ASTHMA
     Dosage: 4PUFF PER DAY
     Route: 055
     Dates: start: 20110101, end: 20110308

REACTIONS (3)
  - DYSPNOEA [None]
  - TACHYCARDIA [None]
  - BRONCHOSPASM [None]
